FAERS Safety Report 10072109 (Version 1)
Quarter: 2014Q2

REPORT INFORMATION
  Report Type: Spontaneous
  Country: US (occurrence: None)
  Receive Date: 20140410
  Receipt Date: 20140410
  Transmission Date: 20141212
  Serious: Yes (Disabling)
  Sender: FDA-Public Use
  Company Number: None

PATIENT
  Age: 41 Year
  Sex: Female
  Weight: 89.81 kg

DRUGS (1)
  1. DULOXETINE [Suspect]
     Indication: FIBROMYALGIA
     Route: 048
     Dates: start: 20140312, end: 20140403

REACTIONS (5)
  - Product substitution issue [None]
  - Fibromyalgia [None]
  - Disease recurrence [None]
  - Impaired work ability [None]
  - Product quality issue [None]
